FAERS Safety Report 23551013 (Version 1)
Quarter: 2024Q1

REPORT INFORMATION
  Report Type: Report from Study
  Country: US (occurrence: US)
  Receive Date: 20240222
  Receipt Date: 20240222
  Transmission Date: 20240410
  Serious: Yes (Other)
  Sender: FDA-Public Use
  Company Number: US-002147023-NVSC2024US031208

PATIENT
  Age: 44 Year
  Sex: Female

DRUGS (2)
  1. KESIMPTA [Suspect]
     Active Substance: OFATUMUMAB
     Indication: Multiple sclerosis
     Dosage: 0.4 ML, QMO
     Route: 058
     Dates: start: 20240209
  2. KESIMPTA [Suspect]
     Active Substance: OFATUMUMAB
     Indication: Relapsing multiple sclerosis

REACTIONS (14)
  - Haemorrhagic ovarian cyst [Unknown]
  - Influenza like illness [Unknown]
  - Pyrexia [Unknown]
  - Myalgia [Unknown]
  - Dyspnoea [Unknown]
  - Hypertension [Unknown]
  - Alopecia [Unknown]
  - Nausea [Unknown]
  - Illness [Unknown]
  - Abdominal pain [Unknown]
  - Ovarian cyst [Unknown]
  - Fatigue [Unknown]
  - Sciatica [Unknown]
  - Pain [Unknown]

NARRATIVE: CASE EVENT DATE: 20240209
